FAERS Safety Report 6874972-X (Version None)
Quarter: 2010Q2

REPORT INFORMATION
  Report Type: 
  Country: None (occurrence: None)
  Receive Date: 20100616
  Receipt Date: 20090506
  Transmission Date: 20101027
  Serious: Yes (Hospitalization)
  Sender: FDA-Public Use
  Company Number: 1000005583

PATIENT
  Age: 86 Year
  Sex: Female
  Weight: 46.2669 kg

DRUGS (6)
  1. NAMENDA [Suspect]
     Indication: DEMENTIA
     Dosage: 5 MG (5 MG,1 IN 1 D),ORAL ; 10 MG (5 MG,2 IN 1 D),ORAL ; 15 MG,ORAL
     Route: 048
     Dates: start: 20090212, end: 20090218
  2. NAMENDA [Suspect]
     Indication: DEMENTIA
     Dosage: 5 MG (5 MG,1 IN 1 D),ORAL ; 10 MG (5 MG,2 IN 1 D),ORAL ; 15 MG,ORAL
     Route: 048
     Dates: start: 20090219, end: 20090225
  3. NAMENDA [Suspect]
     Indication: DEMENTIA
     Dosage: 5 MG (5 MG,1 IN 1 D),ORAL ; 10 MG (5 MG,2 IN 1 D),ORAL ; 15 MG,ORAL
     Route: 048
     Dates: start: 20090226, end: 20090304
  4. NAMENDA [Suspect]
     Indication: DEMENTIA
     Dosage: 20 MG (10 MG,2 IN 1 D),ORAL
     Route: 048
     Dates: start: 20090305, end: 20090326
  5. METOPROLOL TARTRATE [Concomitant]
  6. DIURETIC (NOS) [Concomitant]

REACTIONS (6)
  - DECREASED APPETITE [None]
  - DIZZINESS [None]
  - DYSKINESIA [None]
  - RESTLESS LEGS SYNDROME [None]
  - TREMOR [None]
  - WEIGHT DECREASED [None]
